FAERS Safety Report 7315608-3 (Version None)
Quarter: 2011Q1

REPORT INFORMATION
  Report Type: 
  Country: None (occurrence: None)
  Receive Date: 20110225
  Receipt Date: 20110222
  Transmission Date: 20110831
  Serious: Yes (Hospitalization, Other)
  Sender: FDA-Public Use
  Company Number: US-ABBOTT-11P-163-0706975-00

PATIENT
  Sex: Male
  Weight: 72.64 kg

DRUGS (20)
  1. HUMIRA [Suspect]
     Route: 058
     Dates: start: 20110201
  2. ENTOCORT EC [Concomitant]
     Indication: CROHN'S DISEASE
  3. BPM SUDO [Concomitant]
     Indication: ALLERGIC SINUSITIS
  4. IRON SUPPLEMENT [Concomitant]
     Indication: PRODUCT USED FOR UNKNOWN INDICATION
  5. VITAMIN COQ10 [Concomitant]
     Indication: PRODUCT USED FOR UNKNOWN INDICATION
  6. PANLOR [Concomitant]
     Indication: HEADACHE
  7. MULTI-VITAMIN [Concomitant]
     Indication: PRODUCT USED FOR UNKNOWN INDICATION
  8. IMODIUM [Concomitant]
     Indication: PRODUCT USED FOR UNKNOWN INDICATION
     Dosage: PATIENT STATED HE USES IT A LOT.
  9. SOMA [Concomitant]
     Indication: INSOMNIA
  10. PREVACID OTC [Concomitant]
  11. IMITREX [Concomitant]
     Indication: MIGRAINE
  12. HUMIRA [Suspect]
     Route: 058
  13. PREVACID OTC [Concomitant]
     Indication: DYSPEPSIA
  14. IMITREX [Concomitant]
     Indication: HEADACHE
  15. HUMIRA [Suspect]
     Indication: CROHN'S DISEASE
     Dosage: 1ST LOADING DOSE, ONCE
     Route: 058
     Dates: start: 20110103, end: 20110103
  16. HUMIRA [Suspect]
     Dosage: 2ND LOADING DOSE, ONCE
     Route: 058
     Dates: start: 20110118, end: 20110118
  17. PANLOR [Concomitant]
     Indication: MIGRAINE
  18. VITAMIN D [Concomitant]
     Indication: PRODUCT USED FOR UNKNOWN INDICATION
  19. VITAMIN B-12 [Concomitant]
     Indication: PRODUCT USED FOR UNKNOWN INDICATION
  20. FLEXERIL [Concomitant]
     Indication: INSOMNIA

REACTIONS (13)
  - PRURITUS [None]
  - RASH MACULAR [None]
  - ABDOMINAL PAIN [None]
  - GASTROINTESTINAL INFECTION [None]
  - MIGRAINE [None]
  - INJECTION SITE NODULE [None]
  - FREQUENT BOWEL MOVEMENTS [None]
  - ANORECTAL INFECTION [None]
  - MICTURITION URGENCY [None]
  - ENTERITIS INFECTIOUS [None]
  - DYSURIA [None]
  - RECTAL HAEMORRHAGE [None]
  - INTESTINAL OBSTRUCTION [None]
